FAERS Safety Report 9885627 (Version 1)
Quarter: 2014Q1

REPORT INFORMATION
  Report Type: Spontaneous
  Country: US (occurrence: US)
  Receive Date: 20140210
  Receipt Date: 20140210
  Transmission Date: 20141002
  Serious: No
  Sender: FDA-Public Use
  Company Number: US-GILEAD-2012-0051824

PATIENT
  Sex: Female

DRUGS (4)
  1. VIREAD [Suspect]
     Indication: HIV INFECTION
     Dosage: UNK
  2. INTELENCE [Concomitant]
     Indication: HIV INFECTION
     Dosage: UNK
  3. ISENTRESS [Concomitant]
     Indication: HIV INFECTION
     Dosage: UNK
  4. VICODIN [Concomitant]
     Indication: PAIN

REACTIONS (1)
  - Rash [Unknown]
